FAERS Safety Report 20318821 (Version 1)
Quarter: 2022Q1

REPORT INFORMATION
  Report Type: Spontaneous
  Country: US (occurrence: US)
  Receive Date: 20220110
  Receipt Date: 20220110
  Transmission Date: 20220423
  Serious: No
  Sender: FDA-Public Use
  Company Number: US-PFIZER INC-2021585609

PATIENT
  Age: 63 Year
  Sex: Male

DRUGS (4)
  1. XELJANZ XR [Suspect]
     Active Substance: TOFACITINIB CITRATE
     Indication: Rheumatoid arthritis
     Dosage: 11 MG, 1X/DAY (TAKE 1 (ONE) TABLET BY MOUTH DAILY)
     Route: 048
  2. SULFASALAZINE [Concomitant]
     Active Substance: SULFASALAZINE
     Dosage: UNK
  3. LISINOPRIL AN [Concomitant]
     Dosage: UNK
  4. ROPINIROLE [Concomitant]
     Active Substance: ROPINIROLE
     Dosage: UNK

REACTIONS (2)
  - Product dose omission issue [Unknown]
  - Pain [Unknown]
